FAERS Safety Report 6273147-5 (Version None)
Quarter: 2009Q3

REPORT INFORMATION
  Report Type: 
  Country: None (occurrence: None)
  Receive Date: 20090715
  Receipt Date: 20090715
  Transmission Date: 20100115
  Serious: No
  Sender: FDA-Public Use
  Company Number: None

PATIENT
  Sex: Female
  Weight: 74.8435 kg

DRUGS (2)
  1. ZICAM SPRAY [Suspect]
     Indication: INFLUENZA
     Dosage: FALL OF 2008
     Dates: start: 20080101
  2. ZICAM STICKS [Suspect]
     Indication: INFLUENZA
     Dates: start: 20080201

REACTIONS (1)
  - PAROSMIA [None]
